FAERS Safety Report 8344103-8 (Version None)
Quarter: 2012Q2

REPORT INFORMATION
  Report Type: 
  Country: None (occurrence: None)
  Receive Date: 20120504
  Receipt Date: 20110819
  Transmission Date: 20120825
  Serious: Yes (Other)
  Sender: FDA-Public Use
  Company Number: 2011AP001807

PATIENT
  Age: 34 Year
  Sex: Male

DRUGS (4)
  1. DULOXETINE HYDROCHLORIDE [Concomitant]
  2. GABAPENTIN [Suspect]
     Indication: OFF LABEL USE
     Dosage: 100;200;300 MG, HS
  3. GABAPENTIN [Suspect]
     Indication: SOCIAL PHOBIA
     Dosage: 100;200;300 MG, HS
  4. BUPROPION HCL [Concomitant]

REACTIONS (6)
  - ERECTILE DYSFUNCTION [None]
  - OFF LABEL USE [None]
  - LOSS OF LIBIDO [None]
  - MALE SEXUAL DYSFUNCTION [None]
  - EJACULATION FAILURE [None]
  - ANORGASMIA [None]
